FAERS Safety Report 6763460-7 (Version None)
Quarter: 2010Q2

REPORT INFORMATION
  Report Type: 
  Country: None (occurrence: None)
  Receive Date: 20100608
  Receipt Date: 20100528
  Transmission Date: 20101027
  Serious: Yes (Life-Threatening)
  Sender: FDA-Public Use
  Company Number: TPA2010A03308

PATIENT
  Age: 91 Year
  Sex: Female

DRUGS (8)
  1. ADENURIC (FEBUXOSTAT) [Suspect]
     Indication: GOUT
     Dosage: 80 MG, 1 IN 1 D, ORAL
     Route: 048
     Dates: end: 20100508
  2. DIAMICRON (GLICLAZIDE) [Suspect]
     Indication: TYPE 2 DIABETES MELLITUS
     Dosage: 30 MG, 1 IN 1 D, ORAL
     Route: 048
     Dates: start: 20080101, end: 20100508
  3. PERINDOPRIL ERBUMINE [Suspect]
     Indication: CARDIAC FAILURE
     Dosage: 5 MG, 1 IN 1 D, ORAL
     Route: 048
     Dates: start: 20080101, end: 20100508
  4. LERCANIDIPINE [Suspect]
     Indication: HYPERTENSION
     Dosage: 10 MG, 1 IN 1 D, ORAL
     Route: 048
     Dates: end: 20100508
  5. TIMOFERNOL (ASCORBIC ACID) [Concomitant]
  6. BUFLOMEDIL (BUFLOMEDIL) [Concomitant]
  7. FUROSEMIDE [Concomitant]
  8. TRANSIPEG (MACROGOL) [Concomitant]

REACTIONS (5)
  - COMA [None]
  - HYPOGLYCAEMIA [None]
  - HYPOTENSION [None]
  - HYPOTHERMIA [None]
  - RENAL FAILURE ACUTE [None]
